FAERS Safety Report 17600079 (Version 2)
Quarter: 2020Q2

REPORT INFORMATION
  Report Type: Spontaneous
  Country: US (occurrence: US)
  Receive Date: 20200330
  Receipt Date: 20200630
  Transmission Date: 20200713
  Serious: No
  Sender: FDA-Public Use
  Company Number: US-INDIVIOR US-INDV-123791-2020

PATIENT
  Age: 36 Year
  Sex: Male

DRUGS (1)
  1. SUBLOCADE [Suspect]
     Active Substance: BUPRENORPHINE
     Indication: DRUG USE DISORDER
     Dosage: 300 MILLIGRAM, QMO (TWO INJECTIONS RECEIVED)
     Route: 058
     Dates: start: 20200110

REACTIONS (15)
  - Injection site infection [Recovered/Resolved]
  - Injection site urticaria [Recovered/Resolved]
  - Drug effect less than expected [Unknown]
  - Feeling of body temperature change [Not Recovered/Not Resolved]
  - Injection site erythema [Recovered/Resolved]
  - Injection site pain [Recovered/Resolved]
  - Insomnia [Not Recovered/Not Resolved]
  - Injection site erosion [Recovering/Resolving]
  - Injection site pruritus [Recovered/Resolved]
  - Injection site warmth [Recovered/Resolved]
  - Drug dependence [Recovered/Resolved]
  - Wrong technique in product usage process [Recovered/Resolved]
  - Injection site bruising [Recovered/Resolved]
  - Drug withdrawal syndrome [Not Recovered/Not Resolved]
  - Diarrhoea [Not Recovered/Not Resolved]

NARRATIVE: CASE EVENT DATE: 202001
